FAERS Safety Report 16806803 (Version 5)
Quarter: 2020Q3

REPORT INFORMATION
  Report Type: Spontaneous
  Country: CA (occurrence: CA)
  Receive Date: 20190913
  Receipt Date: 20200910
  Transmission Date: 20201102
  Serious: Yes (Other)
  Sender: FDA-Public Use
  Company Number: CA-ASCEND THERAPEUTICS US, LLC-2074452

PATIENT
  Sex: Female

DRUGS (27)
  1. JAMP ACETAMINOPHEN (PARACETAMOL)?FOR PYREXIA [Suspect]
     Active Substance: ACETAMINOPHEN
  2. OLANZAPINE. [Suspect]
     Active Substance: OLANZAPINE
  3. CHOLECALCIFEROL [Suspect]
     Active Substance: CHOLECALCIFEROL
  4. ESTROGEL [Suspect]
     Active Substance: ESTRADIOL
     Route: 067
  5. CLOZAPINE. [Suspect]
     Active Substance: CLOZAPINE
  6. MINT ZOPICLONE?FOR INSOMNIA [Suspect]
     Active Substance: ZOPICLONE
  7. OLANZAPINE. [Suspect]
     Active Substance: OLANZAPINE
  8. RANITIDINE. [Suspect]
     Active Substance: RANITIDINE
  9. ESTROGEL [Suspect]
     Active Substance: ESTRADIOL
     Indication: PRODUCT USED FOR UNKNOWN INDICATION
     Route: 067
  10. OLANZAPINE. [Suspect]
     Active Substance: OLANZAPINE
  11. ALMAGEL [ALUMINUM HYDROXIDE/MAGNESIUM HYDROXIDE/SIMETHICONE] [Suspect]
     Active Substance: ALUMINUM HYDROXIDE\DIMETHICONE\MAGNESIUM HYDROXIDE
     Route: 048
  12. DEPAKOTE [Suspect]
     Active Substance: DIVALPROEX SODIUM
  13. DEPAKOTE [Suspect]
     Active Substance: DIVALPROEX SODIUM
  14. ESTROGEL [Suspect]
     Active Substance: ESTRADIOL
  15. INFLUENZA VACCINE (INFLUENZA VACCINE) UNKNOWN?INDICATION FOR USE: PROP [Suspect]
     Active Substance: INFLUENZA VIRUS VACCINE
  16. BREXPIPRAZOLE REPORTED AS RESULTI TABLETS [Suspect]
     Active Substance: BREXPIPRAZOLE
  17. LEVOTHYROXINE SODIUM. [Suspect]
     Active Substance: LEVOTHYROXINE SODIUM
  18. CLOTRIMAZOLE. [Suspect]
     Active Substance: CLOTRIMAZOLE
  19. JAMP ACETAMINOPHEN (PARACETAMOL)?FOR PAIN [Suspect]
     Active Substance: ACETAMINOPHEN
  20. PREMARIN [Suspect]
     Active Substance: ESTROGENS, CONJUGATED
     Route: 061
  21. ACETAMINOPHEN. [Suspect]
     Active Substance: ACETAMINOPHEN
  22. ACETAMINOPHEN+ CAFFEINE (CAFFEINE, PARAETAMOL), UNKNOWN [Suspect]
     Active Substance: ACETAMINOPHEN\CAFFEINE
     Route: 065
  23. MINT ZPICLONE REPORTED AS ZOPICLONE TABLETS [Suspect]
     Active Substance: ZOPICLONE
  24. CLOZAPINE. [Suspect]
     Active Substance: CLOZAPINE
  25. AMLODIPINE [Suspect]
     Active Substance: AMLODIPINE BESYLATE
  26. ARIPIPRAZOLE. [Suspect]
     Active Substance: ARIPIPRAZOLE
  27. BREXPIPRAZOLE (BREXPIPRAZOLE) [Suspect]
     Active Substance: BREXPIPRAZOLE

REACTIONS (5)
  - Sinus rhythm [Unknown]
  - Electrocardiogram QT prolonged [Unknown]
  - Drug interaction [Unknown]
  - Schizoaffective disorder [Unknown]
  - Drug level increased [Unknown]
